FAERS Safety Report 10283520 (Version 4)
Quarter: 2014Q4

REPORT INFORMATION
  Report Type: Spontaneous
  Country: US (occurrence: US)
  Receive Date: 20140708
  Receipt Date: 20141117
  Transmission Date: 20150528
  Serious: Yes (Other)
  Sender: FDA-Public Use
  Company Number: US-JNJFOC-20140702706

PATIENT
  Age: 59 Year
  Sex: Female
  Weight: 60 kg

DRUGS (8)
  1. IMBRUVICA [Suspect]
     Active Substance: IBRUTINIB
     Indication: CHRONIC LYMPHOCYTIC LEUKAEMIA
     Route: 048
     Dates: start: 20140318, end: 20140617
  2. LOTEMAX [Concomitant]
     Active Substance: LOTEPREDNOL ETABONATE
  3. VITAMIN B12 [Concomitant]
     Active Substance: CYANOCOBALAMIN
  4. OXYCODONE [Concomitant]
     Active Substance: OXYCODONE
  5. DRISDOL [Concomitant]
     Active Substance: ERGOCALCIFEROL
  6. COLACE [Concomitant]
     Active Substance: DOCUSATE SODIUM
  7. LISINOPRIL. [Concomitant]
     Active Substance: LISINOPRIL
     Indication: HYPERTENSION
  8. IMBRUVICA [Suspect]
     Active Substance: IBRUTINIB
     Indication: CHRONIC LYMPHOCYTIC LEUKAEMIA
     Route: 048
     Dates: start: 2014

REACTIONS (6)
  - Retinal haemorrhage [Recovered/Resolved]
  - Cataract [Not Recovered/Not Resolved]
  - Headache [Recovered/Resolved]
  - Macular degeneration [Not Recovered/Not Resolved]
  - Hypertension [Recovered/Resolved]
  - Macular oedema [Not Recovered/Not Resolved]

NARRATIVE: CASE EVENT DATE: 2014
